FAERS Safety Report 7637219-2 (Version None)
Quarter: 2011Q3

REPORT INFORMATION
  Report Type: 
  Country: None (occurrence: None)
  Receive Date: 20110726
  Receipt Date: 20110712
  Transmission Date: 20111222
  Serious: Yes (Hospitalization)
  Sender: FDA-Public Use
  Company Number: PHHY2011KR62685

PATIENT
  Age: 48 Year
  Sex: Male

DRUGS (5)
  1. VITAMIN B1 TAB [Concomitant]
     Dosage: UNK UKN, UNK
  2. VALPROIC ACID [Concomitant]
     Dosage: UNK UKN, UNK
  3. OXETHAZAINE [Concomitant]
     Dosage: UNK UKN, UNK
  4. CARBAMAZEPINE [Suspect]
     Dosage: UNK UKN, UNK
  5. ZONISAMIDE [Concomitant]
     Dosage: UNK UKN, UNK

REACTIONS (3)
  - DIVERTICULITIS [None]
  - PYREXIA [None]
  - ABDOMINAL PAIN [None]
